FAERS Safety Report 15030207 (Version 1)
Quarter: 2018Q2

REPORT INFORMATION
  Report Type: Spontaneous
  Country: JP (occurrence: JP)
  Receive Date: 20180619
  Receipt Date: 20180619
  Transmission Date: 20180711
  Serious: Yes (Other)
  Sender: FDA-Public Use
  Company Number: JP-PFIZER INC-2018239581

PATIENT
  Age: 79 Year
  Sex: Male
  Weight: 60 kg

DRUGS (4)
  1. CELECOX [Suspect]
     Active Substance: CELECOXIB
     Indication: CERVICAL RADICULOPATHY
     Dosage: 100 MG, 2X/DAY
     Dates: start: 2017
  2. CELECOX [Suspect]
     Active Substance: CELECOXIB
     Indication: LUMBAR SPINAL STENOSIS
  3. LYRICA [Suspect]
     Active Substance: PREGABALIN
     Indication: CERVICAL RADICULOPATHY
     Dosage: 75 MG, 2X/DAY
     Dates: start: 2017
  4. LYRICA [Suspect]
     Active Substance: PREGABALIN
     Indication: LUMBAR SPINAL STENOSIS

REACTIONS (4)
  - Gynaecomastia [Unknown]
  - Gastric ulcer [Unknown]
  - Breast mass [Unknown]
  - Chest pain [Unknown]
